FAERS Safety Report 23280248 (Version 1)
Quarter: 2023Q4

REPORT INFORMATION
  Report Type: Spontaneous
  Country: FR (occurrence: FR)
  Receive Date: 20231210
  Receipt Date: 20231210
  Transmission Date: 20240110
  Serious: Yes (Death)
  Sender: FDA-Public Use
  Company Number: None

PATIENT
  Age: 85 Year
  Sex: Male

DRUGS (1)
  1. METHOTREXATE [Suspect]
     Active Substance: METHOTREXATE
     Indication: Rheumatoid arthritis
     Dosage: 15.000MG
     Route: 058
     Dates: start: 2016, end: 20230728

REACTIONS (2)
  - Mouth ulceration [Fatal]
  - Bicytopenia [Fatal]

NARRATIVE: CASE EVENT DATE: 20230728
